FAERS Safety Report 14184303 (Version 1)
Quarter: 2017Q4

REPORT INFORMATION
  Report Type: Spontaneous
  Country: US (occurrence: US)
  Receive Date: 20171113
  Receipt Date: 20171113
  Transmission Date: 20180321
  Serious: No
  Sender: FDA-Public Use
  Company Number: US-ALLERGAN-1754938US

PATIENT
  Sex: Male

DRUGS (4)
  1. DOXYCYCLINE HYCLATE. [Concomitant]
     Active Substance: DOXYCYCLINE HYCLATE
     Indication: LACRIMATION DECREASED
     Dosage: 100 MG, UNK
     Route: 048
  2. ASPIRIN. [Concomitant]
     Active Substance: ASPIRIN
     Indication: PRODUCT USED FOR UNKNOWN INDICATION
     Route: 048
  3. RAPAFLO [Suspect]
     Active Substance: SILODOSIN
     Indication: BENIGN PROSTATIC HYPERPLASIA
     Dosage: 8 MG, UNK
     Route: 048
  4. RAPAFLO [Suspect]
     Active Substance: SILODOSIN
     Dosage: 8 MG, UNK
     Route: 048

REACTIONS (7)
  - Bladder pain [Recovered/Resolved]
  - Product lot number issue [Unknown]
  - Pain [Recovered/Resolved]
  - Drug ineffective [Unknown]
  - Back pain [Recovered/Resolved]
  - Renal pain [Recovered/Resolved]
  - Testicular pain [Recovered/Resolved]
